FAERS Safety Report 6228157-0 (Version None)
Quarter: 2009Q2

REPORT INFORMATION
  Report Type: 
  Country: None (occurrence: None)
  Receive Date: 20090612
  Receipt Date: 20090609
  Transmission Date: 20091009
  Serious: Yes (Death)
  Sender: FDA-Public Use
  Company Number: DE-BRISTOL-MYERS SQUIBB COMPANY-13738372

PATIENT
  Age: 79 Year
  Sex: Female

DRUGS (12)
  1. CETUXIMAB [Suspect]
     Indication: COLORECTAL CANCER METASTATIC
     Dosage: RECIEVED AS PROTOCOL
     Route: 042
     Dates: start: 20070227, end: 20070227
  2. OXALIPLATIN [Suspect]
     Indication: COLORECTAL CANCER METASTATIC
     Route: 042
     Dates: start: 20070227, end: 20070227
  3. FLUOROURACIL [Suspect]
     Indication: COLORECTAL CANCER METASTATIC
     Route: 042
     Dates: start: 20070227, end: 20070301
  4. FOLINIC ACID [Suspect]
     Indication: COLORECTAL CANCER METASTATIC
     Route: 042
     Dates: start: 20070227, end: 20070227
  5. DIGITOXIN TAB [Concomitant]
     Dosage: UNKNOWN-28FEB2009
  6. ASPIRIN [Concomitant]
  7. METO-TABLINEN [Concomitant]
  8. VERGENTAN [Concomitant]
     Dosage: 27FEB-29FEB2009
     Dates: start: 20070227
  9. RANITIDINE [Concomitant]
     Dosage: 27FEB09-27FEB09
  10. DEXAMETHASONE [Concomitant]
     Dosage: 27FEB09-27FEB09
  11. CLEMASTINE FUMARATE [Concomitant]
     Dosage: 27FEB09-27FEB09
  12. GRANISETRON HCL [Concomitant]
     Dosage: 27FEB09-27FEB09

REACTIONS (1)
  - CARDIAC FAILURE [None]
